FAERS Safety Report 8105507-1 (Version None)
Quarter: 2012Q1

REPORT INFORMATION
  Report Type: 
  Country: None (occurrence: None)
  Receive Date: 20120201
  Receipt Date: 20120125
  Transmission Date: 20120608
  Serious: Yes (Hospitalization, Other)
  Sender: FDA-Public Use
  Company Number: BR-PFIZER INC-2012021316

PATIENT
  Sex: Male

DRUGS (1)
  1. XALATAN [Suspect]
     Indication: INTRAOCULAR PRESSURE TEST
     Dosage: 1 DROP EACH EYE, 1X/DAY
     Route: 047
     Dates: start: 20050101

REACTIONS (1)
  - INTRAOCULAR PRESSURE TEST ABNORMAL [None]
